FAERS Safety Report 5006665-8 (Version None)
Quarter: 2006Q2

REPORT INFORMATION
  Report Type: 
  Country: None (occurrence: None)
  Receive Date: 20060519
  Receipt Date: 20060424
  Transmission Date: 20061013
  Serious: Yes (Hospitalization)
  Sender: FDA-Public Use
  Company Number: TW-ROCHE-445255

PATIENT
  Age: 64 Year
  Sex: Male

DRUGS (13)
  1. XENICAL [Suspect]
     Indication: WEIGHT CONTROL
     Route: 048
     Dates: start: 20040408, end: 20050623
  2. CHINESE MEDICINE NOS [Concomitant]
  3. TRANDATE [Concomitant]
     Indication: HYPERTENSION
     Dosage: RESTARTED ON 17 MAY 2005
     Route: 048
     Dates: start: 20040304, end: 20050615
  4. ALDACTONE [Concomitant]
     Indication: HYPERTENSION
     Route: 048
     Dates: start: 20040603
  5. DIPYRIDAMOLE [Concomitant]
     Indication: HYPERTENSION
     Route: 048
     Dates: start: 20050127
  6. ALLEGRA [Concomitant]
     Dosage: STOPPED IN APRIL 04 AND RESTARTED ON 17 MAY 2005
     Route: 048
     Dates: start: 20040408, end: 20050515
  7. PEACE [Concomitant]
     Route: 048
     Dates: start: 20050517
  8. TITRACE [Concomitant]
     Indication: HYPERTENSION
     Dosage: STOP DATE REPORTED AS 2004
     Route: 048
     Dates: start: 20040909
  9. UNSPECIFIED DRUG [Concomitant]
     Dosage: STOP DATE REPORTED AS 2004. DRUG REPORTED AS TENCAIN/TENGAM
     Route: 048
     Dates: start: 20040706
  10. UNSPECIFIED DRUG [Concomitant]
     Dosage: REPORTED AS METHACIN GEL
     Route: 061
     Dates: start: 20040706
  11. FLUITRAN [Concomitant]
     Indication: HYPERTENSION
     Route: 048
     Dates: start: 20040304, end: 20040615
  12. BENZBROMARON [Concomitant]
     Route: 048
     Dates: start: 20040408, end: 20040615
  13. REGROW [Concomitant]
     Route: 048
     Dates: start: 20040408, end: 20040415

REACTIONS (13)
  - ARTERIOSCLEROSIS CORONARY ARTERY [None]
  - ASCITES [None]
  - COLON CANCER [None]
  - COLONIC POLYP [None]
  - CYSTITIS [None]
  - HAEMORRHOIDS [None]
  - HEPATIC STEATOSIS [None]
  - ILEUS [None]
  - INTESTINAL OBSTRUCTION [None]
  - LUNG DISORDER [None]
  - PLEURAL EFFUSION [None]
  - PLEURISY [None]
  - PNEUMOPERITONEUM [None]
